FAERS Safety Report 5601135-8 (Version None)
Quarter: 2008Q1

REPORT INFORMATION
  Report Type: 
  Country: None (occurrence: None)
  Receive Date: 20080124
  Receipt Date: 20080118
  Transmission Date: 20080703
  Serious: Yes (Other)
  Sender: FDA-Public Use
  Company Number: FR-JNJFOC-20080105123

PATIENT
  Sex: Male

DRUGS (1)
  1. CAELYX [Suspect]
     Indication: KAPOSI'S SARCOMA
     Dosage: 8 DOSES ADMINISTERED
     Route: 042

REACTIONS (1)
  - CD4 LYMPHOCYTES DECREASED [None]
